FAERS Safety Report 7043655-8 (Version None)
Quarter: 2010Q4

REPORT INFORMATION
  Report Type: 
  Country: None (occurrence: None)
  Receive Date: 20101013
  Receipt Date: 20101011
  Transmission Date: 20110411
  Serious: No
  Sender: FDA-Public Use
  Company Number: US-B.I. PHARMACEUTICALS,INC./RIDGEFIELD-2010-BP-11469BP

PATIENT
  Age: 59 Year
  Sex: Female

DRUGS (5)
  1. ZANTAC 150 [Suspect]
     Indication: HYPERCHLORHYDRIA
     Dosage: 150 MG
     Route: 048
     Dates: start: 20100901, end: 20101009
  2. ZANTAC 150 [Suspect]
     Indication: HYPERSENSITIVITY
  3. BENICAR [Concomitant]
     Indication: HYPERTENSION
     Dosage: 20 MG
     Route: 048
     Dates: start: 20080101
  4. DETROL LA [Concomitant]
     Indication: INCONTINENCE
     Dosage: 4 MG
     Route: 048
     Dates: start: 20080101
  5. ASPIRIN [Concomitant]
     Indication: HYPERTENSION
     Dosage: 81 MG
     Route: 048
     Dates: start: 20080101

REACTIONS (1)
  - URTICARIA [None]
